FAERS Safety Report 25941515 (Version 1)
Quarter: 2025Q4

REPORT INFORMATION
  Report Type: Spontaneous
  Country: US (occurrence: None)
  Receive Date: 20251020
  Receipt Date: 20251020
  Transmission Date: 20260118
  Serious: Yes (Hospitalization)
  Sender: FDA-CTU
  Company Number: None

PATIENT
  Sex: Male

DRUGS (4)
  1. VYNDAMAX [Suspect]
     Active Substance: TAFAMIDIS
     Indication: Acquired ATTR amyloidosis
     Dosage: : TAKE 1 CAPSULE (61 MG) BY MOUTH DAILY.
     Route: 048
     Dates: start: 20220803
  2. AMVUTTRA SOL 25/0.5ML [Concomitant]
  3. BUT/APAP/CAF CAP [Concomitant]
  4. PRESERVISION CAP AR EDS 2 [Concomitant]

REACTIONS (2)
  - Dyspnoea [None]
  - Pleural effusion [None]
